FAERS Safety Report 8054486-4 (Version None)
Quarter: 2012Q1

REPORT INFORMATION
  Report Type: 
  Country: None (occurrence: None)
  Receive Date: 20120118
  Receipt Date: 20120111
  Transmission Date: 20120608
  Serious: Yes (Other)
  Sender: FDA-Public Use
  Company Number: US-ROCHE-790151

PATIENT
  Sex: Female
  Weight: 68.1 kg

DRUGS (4)
  1. ACCUTANE [Suspect]
     Indication: ACNE
     Route: 048
     Dates: start: 19960101, end: 19960101
  2. NAPROXEN (ALEVE) [Concomitant]
     Indication: HEADACHE
  3. ACCUTANE [Suspect]
     Route: 048
     Dates: start: 19951117, end: 19960419
  4. ACCUTANE [Suspect]
     Dosage: 20 MG Q. DAILY, 40 MG Q. DAILY
     Route: 048
     Dates: start: 19980201, end: 19980601

REACTIONS (8)
  - LOW DENSITY LIPOPROTEIN INCREASED [None]
  - BLOOD CHOLESTEROL INCREASED [None]
  - INFLAMMATORY BOWEL DISEASE [None]
  - COLITIS ULCERATIVE [None]
  - UNEVALUABLE EVENT [None]
  - EMOTIONAL DISTRESS [None]
  - IRRITABLE BOWEL SYNDROME [None]
  - BLOOD TRIGLYCERIDES INCREASED [None]
